FAERS Safety Report 11361110 (Version 2)
Quarter: 2015Q3

REPORT INFORMATION
  Report Type: Report from Study
  Country: US (occurrence: US)
  Receive Date: 20150810
  Receipt Date: 20150915
  Transmission Date: 20151125
  Serious: Yes (Hospitalization)
  Sender: FDA-Public Use
  Company Number: US-SA-2015SA114865

PATIENT
  Age: 53 Year
  Sex: Female

DRUGS (3)
  1. AUBAGIO [Suspect]
     Active Substance: TERIFLUNOMIDE
     Indication: MULTIPLE SCLEROSIS
     Route: 065
     Dates: start: 201507, end: 201507
  2. AUBAGIO [Suspect]
     Active Substance: TERIFLUNOMIDE
     Indication: MULTIPLE SCLEROSIS
     Route: 048
     Dates: start: 20150811
  3. AVONEX [Concomitant]
     Active Substance: INTERFERON BETA-1A
     Dates: start: 2015, end: 2015

REACTIONS (9)
  - Syncope [Not Recovered/Not Resolved]
  - Dehydration [Unknown]
  - Pyrexia [Not Recovered/Not Resolved]
  - Blood glucose decreased [Not Recovered/Not Resolved]
  - Feeling abnormal [Not Recovered/Not Resolved]
  - Blood potassium increased [Not Recovered/Not Resolved]
  - Urinary tract infection [Not Recovered/Not Resolved]
  - Confusional state [Not Recovered/Not Resolved]
  - Delusional perception [Not Recovered/Not Resolved]

NARRATIVE: CASE EVENT DATE: 201507
